FAERS Safety Report 4413265-7 (Version None)
Quarter: 2004Q3

REPORT INFORMATION
  Report Type: 
  Country: None (occurrence: None)
  Receive Date: 20040728
  Receipt Date: 20040716
  Transmission Date: 20050211
  Serious: Yes (Other)
  Sender: FDA-Public Use
  Company Number: US-JNJFOC-20040704948

PATIENT
  Age: 66 Year
  Sex: Female
  Weight: 68.4932 kg

DRUGS (3)
  1. REMICADE [Suspect]
     Indication: CROHN'S DISEASE
     Dosage: 400 MG INTRAVENOUS
     Route: 042
     Dates: start: 20040604
  2. ALBUTEROL [Concomitant]
  3. VITAMIN SUPPLEMENT (VITAMINS NOS) [Concomitant]

REACTIONS (1)
  - ARTHRALGIA [None]
